FAERS Safety Report 9449136 (Version 1)
Quarter: 2013Q3

REPORT INFORMATION
  Report Type: Spontaneous
  Country: US (occurrence: US)
  Receive Date: 20130808
  Receipt Date: 20130808
  Transmission Date: 20140515
  Serious: Yes (Hospitalization)
  Sender: FDA-Public Use
  Company Number: US-BAXTER-2013BAX030443

PATIENT
  Age: 23 Year
  Sex: Male

DRUGS (3)
  1. FEIBA [Suspect]
     Indication: FACTOR VIII DEFICIENCY
     Route: 042
     Dates: start: 1999
  2. FEIBA [Suspect]
     Indication: HAEMARTHROSIS
  3. NOVOSEVEN [Concomitant]
     Indication: PRODUCT USED FOR UNKNOWN INDICATION
     Route: 065
     Dates: end: 2013

REACTIONS (1)
  - Haemarthrosis [Unknown]
